FAERS Safety Report 8509293-2 (Version None)
Quarter: 2012Q3

REPORT INFORMATION
  Report Type: 
  Country: None (occurrence: None)
  Receive Date: 20120713
  Receipt Date: 20120706
  Transmission Date: 20120928
  Serious: Yes (Hospitalization)
  Sender: FDA-Public Use
  Company Number: AU-ROCHE-1083215

PATIENT
  Sex: Female

DRUGS (4)
  1. LEVONORGESTREL AND ETHINYL ESTRADIOL [Concomitant]
  2. PEGASYS [Suspect]
     Indication: HEPATITIS C
     Dates: start: 20120323, end: 20120413
  3. RIBAVIRIN [Suspect]
     Indication: HEPATITIS C
     Route: 048
  4. VENTOLIN [Concomitant]

REACTIONS (1)
  - DELUSION [None]
